FAERS Safety Report 8090490-8 (Version None)
Quarter: 2012Q1

REPORT INFORMATION
  Report Type: 
  Country: None (occurrence: None)
  Receive Date: 20120129
  Receipt Date: 20111103
  Transmission Date: 20120608
  Serious: No
  Sender: FDA-Public Use
  Company Number: US-ABBOTT-11P-163-0871146-00

PATIENT
  Age: 39 Year
  Sex: Male

DRUGS (2)
  1. SSRI [Concomitant]
     Indication: SLEEP APNOEA SYNDROME
  2. HUMIRA [Suspect]
     Indication: PSORIASIS
     Dates: start: 20110801

REACTIONS (7)
  - HEADACHE [None]
  - BLOOD PRESSURE INCREASED [None]
  - PSORIASIS [None]
  - MALAISE [None]
  - VITAMIN D DEFICIENCY [None]
  - BLOOD CHOLESTEROL INCREASED [None]
  - PAIN IN EXTREMITY [None]
